FAERS Safety Report 4530651-5 (Version None)
Quarter: 2004Q4

REPORT INFORMATION
  Report Type: 
  Country: None (occurrence: None)
  Receive Date: 20041216
  Receipt Date: 20041130
  Transmission Date: 20050328
  Serious: Yes (Death)
  Sender: FDA-Public Use
  Company Number: 430019M04DEU

PATIENT
  Age: 61 Year
  Sex: Male

DRUGS (2)
  1. MITOXANTRONE [Suspect]
     Dosage: 28 MG, 1 IN 1 CYCLE
     Dates: start: 19970201, end: 19970703
  2. ANALGESICS [Concomitant]

REACTIONS (1)
  - SEDATION [None]
